FAERS Safety Report 4502279-4 (Version None)
Quarter: 2004Q4

REPORT INFORMATION
  Report Type: 
  Country: None (occurrence: None)
  Receive Date: 20041116
  Receipt Date: 20041110
  Transmission Date: 20050328
  Serious: Yes (Other)
  Sender: FDA-Public Use
  Company Number: PHEH2004US12149

PATIENT

DRUGS (1)
  1. TRILEPTAL [Suspect]

REACTIONS (1)
  - METABOLIC ACIDOSIS [None]
